FAERS Safety Report 13472595 (Version 1)
Quarter: 2017Q2

REPORT INFORMATION
  Report Type: Spontaneous
  Country: US (occurrence: US)
  Receive Date: 20170424
  Receipt Date: 20170424
  Transmission Date: 20170830
  Serious: No
  Sender: FDA-Public Use
  Company Number: None

PATIENT
  Age: 51 Year
  Sex: Male

DRUGS (1)
  1. ZEPATIER [Suspect]
     Active Substance: ELBASVIR\GRAZOPREVIR
     Indication: HEPATITIS C
     Dosage: DOSE - 50/100MG
     Route: 048
     Dates: start: 20170303

REACTIONS (2)
  - Diarrhoea [None]
  - Dry mouth [None]

NARRATIVE: CASE EVENT DATE: 201703
